FAERS Safety Report 6266953-4 (Version None)
Quarter: 2009Q3

REPORT INFORMATION
  Report Type: 
  Country: None (occurrence: None)
  Receive Date: 20090714
  Receipt Date: 20090702
  Transmission Date: 20100115
  Serious: Yes (Hospitalization, Other)
  Sender: FDA-Public Use
  Company Number: US-ROCHE-552259

PATIENT
  Sex: Male
  Weight: 79.4 kg

DRUGS (2)
  1. ACCUTANE [Suspect]
     Indication: ACNE
     Route: 065
     Dates: start: 19990331, end: 19990501
  2. ZOLOFT [Concomitant]

REACTIONS (17)
  - ANAL STENOSIS [None]
  - BLOOD CHOLESTEROL INCREASED [None]
  - BRONCHITIS [None]
  - COLITIS [None]
  - COLITIS ULCERATIVE [None]
  - DEHYDRATION [None]
  - DEPRESSION [None]
  - DRY SKIN [None]
  - FATIGUE [None]
  - GASTROENTERITIS VIRAL [None]
  - HAEMORRHAGE [None]
  - INFLAMMATORY BOWEL DISEASE [None]
  - LIP DRY [None]
  - PAIN IN EXTREMITY [None]
  - RASH [None]
  - SINUSITIS [None]
  - SUICIDAL IDEATION [None]
